FAERS Safety Report 5672827-X (Version None)
Quarter: 2008Q1

REPORT INFORMATION
  Report Type: 
  Country: None (occurrence: None)
  Receive Date: 20080317
  Receipt Date: 20080303
  Transmission Date: 20080703
  Serious: Yes (Hospitalization)
  Sender: FDA-Public Use
  Company Number: 2008BI000193

PATIENT
  Age: 57 Year
  Sex: Male

DRUGS (1)
  1. AVONEX [Suspect]
     Indication: DRUG USE FOR UNKNOWN INDICATION
     Dosage: ;IM
     Route: 030
     Dates: start: 19990101, end: 20071227

REACTIONS (5)
  - ABASIA [None]
  - ABSCESS [None]
  - ASTHENIA [None]
  - INFECTION [None]
  - INJECTION SITE CELLULITIS [None]
